FAERS Safety Report 7602140-2 (Version None)
Quarter: 2011Q3

REPORT INFORMATION
  Report Type: 
  Country: None (occurrence: None)
  Receive Date: 20110711
  Receipt Date: 20110630
  Transmission Date: 20111222
  Serious: Yes (Other)
  Sender: FDA-Public Use
  Company Number: PHEH2008US06330

PATIENT
  Sex: Female
  Weight: 45.351 kg

DRUGS (68)
  1. CALCIUM CARBONATE [Concomitant]
  2. FEMARA [Concomitant]
     Dosage: 2.5 , DAILY
  3. ZOCOR [Concomitant]
     Dosage: 10 MG
  4. TOBRADEX [Concomitant]
     Dosage: UNK
  5. ACETIC ACID [Concomitant]
     Dosage: UNK
  6. NITROFURANTOIN [Concomitant]
     Dosage: UNK
  7. TRETINOIN [Concomitant]
     Dosage: UNK
  8. SKELAXIN [Concomitant]
     Dosage: 800 MG
  9. CENTRUM SILVER [Concomitant]
  10. FASLODEX [Concomitant]
  11. FOSAMAX [Concomitant]
     Dosage: UNK
  12. CIPROFLOXACIN HYDROCHLORIDE [Concomitant]
     Dosage: 500 MG
  13. ALLEGRA [Concomitant]
     Dosage: UNK
  14. LESCOL XL [Concomitant]
     Dosage: 80 MG
  15. BACTRIM [Concomitant]
  16. PROPRANOLOL HCL [Concomitant]
  17. EVISTA [Concomitant]
  18. PRILOSEC [Concomitant]
     Dosage: 40 MG
     Dates: start: 20050218
  19. METROLOTION [Concomitant]
     Dosage: UNK
     Route: 061
  20. LEVAQUIN [Concomitant]
     Dosage: 500 MG
  21. TRIAMCINOLONE [Concomitant]
     Dosage: UNK
  22. COMBGEN [Concomitant]
     Dosage: UNK
  23. XANAX [Concomitant]
  24. FLAGYL [Concomitant]
     Dosage: 500 MG, QID FOR 6 DAYS
  25. CITALOPRAM HYDROBROMIDE [Concomitant]
  26. TAMOXIFEN CITRATE [Concomitant]
  27. PROCHLORPERAZINE TAB [Concomitant]
     Dosage: 5 MG
  28. ZYRTEC [Concomitant]
     Dosage: 10 MG
  29. RHINOCORT [Concomitant]
     Dosage: UNK
     Route: 045
  30. TAMIFLU [Concomitant]
     Dosage: 75 MG
  31. ZEN [Concomitant]
  32. PERIDEX [Concomitant]
  33. CLINDAMYCIN [Concomitant]
  34. ZANTAC [Concomitant]
     Dosage: 300 MG
     Dates: start: 20050218
  35. EVOXAC [Concomitant]
     Dosage: 30MG
  36. DIAZEPAM [Concomitant]
     Dosage: 5 MG
  37. CLARITHROMYCIN [Concomitant]
     Dosage: 500 MG
  38. DIPHENHYDRAMINE HCL [Concomitant]
     Dosage: 50 MG
  39. ZOMETA [Suspect]
     Indication: OSTEOPOROSIS
     Dosage: 3 MG/4 MG
     Dates: start: 20040322, end: 20051102
  40. MULTIVITAMIN ^LAPPE^ [Concomitant]
  41. AVITA [Concomitant]
     Dosage: UNK
  42. ZITHROMAX [Concomitant]
     Dosage: 250 MG
  43. OXYCODONE HCL AND ACETAMINOPHEN [Concomitant]
     Dosage: UNK
  44. PROPOXYPHENE NAPSYLATE [Concomitant]
     Dosage: UNK
  45. ISOXSUPRINE HCL [Concomitant]
     Dosage: 10 MG
  46. PRAVACHOL [Concomitant]
     Dosage: 20 MG
  47. DIPHENOXYLATE HCL AND ATROPINE SULFATE [Concomitant]
     Dosage: UNK
  48. FISH OIL [Concomitant]
  49. MIACALCIN [Concomitant]
  50. RALOXIFENE HYDROCHLORIDE [Concomitant]
  51. ISOXSUPRINE HCL [Concomitant]
  52. SIMVASTATIN [Concomitant]
     Dosage: 20 , DAILY
  53. FOLIC ACID [Concomitant]
     Dosage: 1 MG, DAILY
  54. LIPITOR [Concomitant]
     Dosage: 10 MG
  55. MACROBID [Concomitant]
     Dosage: 100 MG
  56. MECLIZINE [Concomitant]
     Dosage: 12.5 MG
  57. CHLORHEXIDINE GLUCONATE [Concomitant]
     Dosage: UNK
  58. CHOLESTYRAMINE [Concomitant]
     Dosage: UNK
  59. FLEXERIL [Concomitant]
  60. PROPRANOLOL [Concomitant]
  61. HYDROCODONE BITARTRATE [Concomitant]
     Dosage: UNK
  62. ERYTHROMYCIN [Concomitant]
     Dosage: UNK
  63. TANNIC ACID [Concomitant]
     Dosage: UNK
  64. ALPRAZOLAM [Concomitant]
     Dosage: 0.25 MG
  65. ASPIRIN [Concomitant]
  66. CITRACAL PLUS [Concomitant]
  67. PREVACID [Concomitant]
  68. RANITIDINE HYDROCHLORIDE [Concomitant]

REACTIONS (99)
  - MITRAL VALVE INCOMPETENCE [None]
  - HYPOPHAGIA [None]
  - NODULE [None]
  - DRY MOUTH [None]
  - DECREASED APPETITE [None]
  - OROPHARYNGEAL PLAQUE [None]
  - INFLAMMATION [None]
  - LACERATION [None]
  - MELANOCYTIC NAEVUS [None]
  - CELLULITIS [None]
  - PAIN [None]
  - DISCOMFORT [None]
  - GOITRE [None]
  - FRACTURED SACRUM [None]
  - FEELING JITTERY [None]
  - HEART RATE IRREGULAR [None]
  - GINGIVAL HYPERPLASIA [None]
  - LARYNGEAL OEDEMA [None]
  - SCAR [None]
  - PHYSICAL DISABILITY [None]
  - INFLUENZA [None]
  - EUSTACHIAN TUBE DYSFUNCTION [None]
  - FALL [None]
  - SJOGREN'S SYNDROME [None]
  - HYPERTENSION [None]
  - CONTUSION [None]
  - SUBGALEAL HAEMATOMA [None]
  - GASTROINTESTINAL MUCOSAL DISORDER [None]
  - POLLAKIURIA [None]
  - EMOTIONAL DISTRESS [None]
  - LIFE EXPECTANCY SHORTENED [None]
  - GINGIVAL BLEEDING [None]
  - OSTEOLYSIS [None]
  - OROPHARYNGEAL PAIN [None]
  - OSTEOARTHRITIS [None]
  - MUSCULOSKELETAL PAIN [None]
  - DYSPHONIA [None]
  - FACIAL PAIN [None]
  - BACK PAIN [None]
  - THYROID ADENOMA [None]
  - TREMOR [None]
  - HIATUS HERNIA [None]
  - ORAL HERPES [None]
  - MORTON'S NEUROMA [None]
  - BONE LOSS [None]
  - GINGIVAL DISORDER [None]
  - VIRAL INFECTION [None]
  - VITREOUS HAEMORRHAGE [None]
  - EAR HAEMORRHAGE [None]
  - FOOT DEFORMITY [None]
  - OSTEONECROSIS OF JAW [None]
  - ISCHAEMIA [None]
  - OSTEOMYELITIS [None]
  - PAIN IN JAW [None]
  - PALPITATIONS [None]
  - HEART RATE INCREASED [None]
  - SPEECH DISORDER [None]
  - CHRONIC OBSTRUCTIVE PULMONARY DISEASE [None]
  - SPINAL CORD DISORDER [None]
  - TRIGONITIS [None]
  - GASTROOESOPHAGEAL REFLUX DISEASE [None]
  - CHRONIC SINUSITIS [None]
  - DIARRHOEA [None]
  - AORTIC ARTERIOSCLEROSIS [None]
  - SPINAL OSTEOARTHRITIS [None]
  - DYSPNOEA [None]
  - MUCOSAL DRYNESS [None]
  - GINGIVAL RECESSION [None]
  - JAW DISORDER [None]
  - GINGIVAL OEDEMA [None]
  - ROTATOR CUFF SYNDROME [None]
  - THYROID NEOPLASM [None]
  - DIZZINESS [None]
  - ACUTE SINUSITIS [None]
  - GAIT DISTURBANCE [None]
  - ANGIOPATHY [None]
  - IMPETIGO [None]
  - HYPERTONIC BLADDER [None]
  - PERIODONTAL DISEASE [None]
  - ANXIETY [None]
  - ANHEDONIA [None]
  - INJURY [None]
  - BONE DISORDER [None]
  - TOOTH IMPACTED [None]
  - RESPIRATORY DISORDER [None]
  - MYALGIA [None]
  - LIPIDS INCREASED [None]
  - COUGH [None]
  - OSTEOPENIA [None]
  - FIBROSIS [None]
  - STOMATITIS [None]
  - GINGIVITIS [None]
  - FISTULA [None]
  - MALAISE [None]
  - DENTURE WEARER [None]
  - CONSTIPATION [None]
  - FATIGUE [None]
  - NECK PAIN [None]
  - GASTROINTESTINAL TRACT ADENOMA [None]
